FAERS Safety Report 9566669 (Version 2)
Quarter: 2013Q3

REPORT INFORMATION
  Report Type: Spontaneous
  Country: US (occurrence: US)
  Receive Date: 20130930
  Receipt Date: 20130930
  Transmission Date: 20140515
  Serious: No
  Sender: FDA-Public Use
  Company Number: US-AMGEN-USASP2012060680

PATIENT
  Sex: Female
  Weight: 58.96 kg

DRUGS (5)
  1. ENBREL [Suspect]
     Indication: PSORIATIC ARTHROPATHY
     Dosage: 50 MG, QWK
     Route: 058
     Dates: start: 20040401, end: 20120917
  2. ENBREL [Suspect]
     Indication: PSORIASIS
  3. SULFASALAZIN [Concomitant]
     Dosage: 500 MG, UNK
  4. FISH OIL [Concomitant]
     Dosage: UNK
  5. MULTIVITAMINS, PLAIN [Concomitant]
     Dosage: UNK

REACTIONS (3)
  - Arthritis [Not Recovered/Not Resolved]
  - Therapeutic response decreased [Not Recovered/Not Resolved]
  - Psoriasis [Not Recovered/Not Resolved]
